FAERS Safety Report 21576865 (Version 3)
Quarter: 2024Q2

REPORT INFORMATION
  Report Type: Spontaneous
  Country: CA (occurrence: CA)
  Receive Date: 20221110
  Receipt Date: 20240420
  Transmission Date: 20240716
  Serious: Yes (Other)
  Sender: FDA-Public Use
  Company Number: None

PATIENT
  Age: 5 Decade
  Sex: Male

DRUGS (1)
  1. METHOTREXATE [Suspect]
     Active Substance: METHOTREXATE
     Indication: Corneal epithelial downgrowth
     Dosage: 1 EVERY 1 WEEKS

REACTIONS (5)
  - Pulmonary tuberculosis [Recovered/Resolved]
  - Atrophy of globe [Unknown]
  - Infective keratitis [Recovered/Resolved]
  - Off label use [Unknown]
  - Retinal pigment epitheliopathy [Recovered/Resolved]
